FAERS Safety Report 7793022-4 (Version None)
Quarter: 2011Q4

REPORT INFORMATION
  Report Type: 
  Country: None (occurrence: None)
  Receive Date: 20111003
  Receipt Date: 20110921
  Transmission Date: 20120403
  Serious: Yes (Death, Hospitalization)
  Sender: FDA-Public Use
  Company Number: GB-JNJFOC-20110603204

PATIENT
  Sex: Female

DRUGS (8)
  1. ABIRATERONE ACETATE [Suspect]
     Dosage: CYCLE 2, 23 DAYS
     Route: 048
     Dates: start: 20110427, end: 20110519
  2. ADCAL D3 [Concomitant]
     Indication: MINERAL SUPPLEMENTATION
     Route: 065
  3. ABIRATERONE ACETATE [Suspect]
     Dosage: CYCLE 3, 22 DAYS
     Route: 048
     Dates: start: 20110526, end: 20110531
  4. ZOMETA [Concomitant]
     Indication: METASTASES TO BONE
     Route: 065
  5. AMLODIPINE [Concomitant]
     Indication: BLOOD PRESSURE INCREASED
     Route: 065
  6. BENDROFLUAZIDE [Concomitant]
     Indication: BLOOD PRESSURE INCREASED
     Route: 065
  7. ABIRATERONE ACETATE [Suspect]
     Indication: BREAST CANCER METASTATIC
     Dosage: CYCLE 3, 22 DAYS
     Route: 048
     Dates: start: 20110604
  8. ABIRATERONE ACETATE [Suspect]
     Dosage: CYCLE 1, FOR 28 DAYS
     Route: 048
     Dates: start: 20110330, end: 20110426

REACTIONS (8)
  - JAUNDICE [None]
  - HYPOKALAEMIA [None]
  - LETHARGY [None]
  - VOMITING [None]
  - DECREASED APPETITE [None]
  - DIARRHOEA [None]
  - BREAST CANCER METASTATIC [None]
  - DISEASE PROGRESSION [None]
